FAERS Safety Report 18605566 (Version 1)
Quarter: 2020Q4

REPORT INFORMATION
  Report Type: Spontaneous
  Country: JP (occurrence: JP)
  Receive Date: 20201211
  Receipt Date: 20201211
  Transmission Date: 20210114
  Serious: Yes (Other)
  Sender: FDA-Public Use
  Company Number: JP-PFIZER INC-2020485953

PATIENT
  Sex: Female

DRUGS (1)
  1. RHEUMATREX [Suspect]
     Active Substance: METHOTREXATE SODIUM
     Dosage: 8 MG, WEEKLY (2 MG, 4X/WEEK )
     Route: 048

REACTIONS (3)
  - Product use issue [Unknown]
  - Breast cancer [Unknown]
  - Myelosuppression [Unknown]
